FAERS Safety Report 5533965-5 (Version None)
Quarter: 2007Q4

REPORT INFORMATION
  Report Type: 
  Country: None (occurrence: None)
  Receive Date: 20071129
  Receipt Date: 20071123
  Transmission Date: 20080405
  Serious: Yes (Hospitalization)
  Sender: FDA-Public Use
  Company Number: 2007SP023556

PATIENT
  Age: 60 Year
  Sex: Female

DRUGS (5)
  1. DESLORATADINE [Suspect]
     Indication: DRUG USE FOR UNKNOWN INDICATION
     Dosage: PO
     Route: 048
     Dates: start: 20070305, end: 20070327
  2. NIFLURIL (NIFLUMIC ACID) [Suspect]
     Indication: DRUG USE FOR UNKNOWN INDICATION
     Dosage: 700 MG; BID; RTL
     Dates: start: 20070305, end: 20070327
  3. DERINOX (NO PREF. NAME) [Suspect]
     Dosage: PO
     Route: 048
     Dates: start: 20070305, end: 20070327
  4. LOGIMAX [Concomitant]
  5. LERCAN [Concomitant]

REACTIONS (2)
  - LEUKOCYTOCLASTIC VASCULITIS [None]
  - PRURIGO [None]
